FAERS Safety Report 20339195 (Version 1)
Quarter: 2022Q1

REPORT INFORMATION
  Report Type: Other
  Country: US (occurrence: None)
  Receive Date: 20220117
  Receipt Date: 20220117
  Transmission Date: 20220423
  Serious: Yes (Death)
  Sender: FDA-Public Use
  Company Number: US-ROCHE-2999785

PATIENT
  Sex: Male
  Weight: 106.24 kg

DRUGS (20)
  1. OCREVUS [Suspect]
     Active Substance: OCRELIZUMAB
     Indication: Multiple sclerosis
     Route: 042
  2. XANAX [Concomitant]
     Active Substance: ALPRAZOLAM
     Route: 048
  3. TENORMIN [Concomitant]
     Active Substance: ATENOLOL
     Route: 048
  4. AMPYRA [Concomitant]
     Active Substance: DALFAMPRIDINE
     Route: 048
  5. PENNSAID [Concomitant]
     Active Substance: DICLOFENAC SODIUM
     Dosage: 2 PUMP
     Route: 061
  6. VOLTAREN [Concomitant]
     Active Substance: DICLOFENAC SODIUM
     Route: 048
  7. FOLVITE [Concomitant]
     Active Substance: FOLIC ACID
     Route: 048
  8. NEURONTIN [Concomitant]
     Active Substance: GABAPENTIN
  9. COPAXONE [Concomitant]
     Active Substance: GLATIRAMER ACETATE
     Dosage: MONDAY, WEDNESDAY AND FRIDAY
     Route: 058
  10. NORCO [Concomitant]
     Active Substance: ACETAMINOPHEN\HYDROCODONE BITARTRATE
     Indication: Pain
     Dosage: 5-325 MG
     Route: 048
  11. ZESTRIL [Concomitant]
     Active Substance: LISINOPRIL
  12. PRILOSEC [Concomitant]
     Active Substance: OMEPRAZOLE MAGNESIUM
     Dosage: BEFORE BREAKFAST
     Route: 048
  13. ZOFRAN [Concomitant]
     Active Substance: ONDANSETRON HYDROCHLORIDE
     Indication: Nausea
     Route: 048
  14. DELTASONE [Concomitant]
     Active Substance: PREDNISONE
  15. PHENERGAN [Concomitant]
     Active Substance: PROMETHAZINE HYDROCHLORIDE
     Indication: Nausea
     Route: 048
  16. ALDACTONE [Concomitant]
     Active Substance: SPIRONOLACTONE
     Route: 048
  17. CARAFATE [Concomitant]
     Active Substance: SUCRALFATE
     Route: 048
  18. ULTRAM ER [Concomitant]
     Active Substance: TRAMADOL HYDROCHLORIDE
     Route: 048
  19. DESYREL [Concomitant]
     Active Substance: TRAZODONE HYDROCHLORIDE
     Dosage: AT BEDTIME 1-2 TABLETS
  20. KENALOG [Concomitant]
     Active Substance: TRIAMCINOLONE ACETONIDE
     Route: 061

REACTIONS (1)
  - Hepatic cirrhosis [Fatal]
